FAERS Safety Report 7416245-2 (Version None)
Quarter: 2011Q2

REPORT INFORMATION
  Report Type: 
  Country: None (occurrence: None)
  Receive Date: 20110414
  Receipt Date: 20110407
  Transmission Date: 20111010
  Serious: Yes (Hospitalization, Other)
  Sender: FDA-Public Use
  Company Number: FR-PFIZER INC-2011077146

PATIENT
  Age: 48 Year
  Sex: Male

DRUGS (3)
  1. BI-PROFENID [Suspect]
     Indication: PAIN
     Dosage: UNK
     Route: 048
     Dates: start: 20101001
  2. ADVIL LIQUI-GELS [Suspect]
     Indication: ABDOMINAL PAIN UPPER
     Dosage: UNK
     Route: 048
     Dates: start: 20100401
  3. PARIET [Suspect]
     Indication: ABDOMINAL PAIN UPPER
     Dosage: UNK
     Route: 048
     Dates: start: 20100401

REACTIONS (4)
  - FACE OEDEMA [None]
  - DYSPNOEA [None]
  - ANGIOEDEMA [None]
  - URTICARIA [None]
